FAERS Safety Report 17864885 (Version 1)
Quarter: 2020Q2

REPORT INFORMATION
  Report Type: Spontaneous
  Country: US (occurrence: US)
  Receive Date: 20200605
  Receipt Date: 20200605
  Transmission Date: 20200714
  Serious: No
  Sender: FDA-Public Use
  Company Number: US-GLENMARK PHARMACEUTICALS-2020GMK046506

PATIENT

DRUGS (1)
  1. OLMESARTAN MEDOXOMIL TABLETS, 20MG [Suspect]
     Active Substance: OLMESARTAN MEDOXOMIL
     Indication: HYPERTENSION
     Dosage: 10 MILLIGRAM, AM ( [ONCE A DAY (HALF TABLET IN MORNING)]
     Route: 048
     Dates: end: 202002

REACTIONS (7)
  - Wrong technique in product usage process [Unknown]
  - Palpitations [Recovering/Resolving]
  - Manufacturing facilities issue [Unknown]
  - Dyspnoea [Recovering/Resolving]
  - Asthenia [Recovering/Resolving]
  - Product quality issue [Unknown]
  - Dyspnoea exertional [Recovering/Resolving]

NARRATIVE: CASE EVENT DATE: 202002
